FAERS Safety Report 24223986 (Version 1)
Quarter: 2024Q3

REPORT INFORMATION
  Report Type: Spontaneous
  Country: CN (occurrence: CN)
  Receive Date: 20240819
  Receipt Date: 20240819
  Transmission Date: 20241016
  Serious: Yes (Other)
  Sender: BAXTER
  Company Number: None

PATIENT
  Age: 58 Year
  Sex: Male
  Weight: 60 kg

DRUGS (3)
  1. MANNITOL [Suspect]
     Active Substance: MANNITOL
     Indication: Brain contusion
     Dosage: 125 ML, TID (DOSAGE FORM: INJECTION)
     Route: 041
     Dates: start: 20240705, end: 20240705
  2. MANNITOL [Suspect]
     Active Substance: MANNITOL
     Indication: Brain oedema
  3. MANNITOL [Suspect]
     Active Substance: MANNITOL
     Indication: Diuretic therapy

REACTIONS (2)
  - Hypokalaemia [Recovering/Resolving]
  - Hyponatraemia [Recovering/Resolving]

NARRATIVE: CASE EVENT DATE: 20240715
